FAERS Safety Report 6304701-X (Version None)
Quarter: 2009Q3

REPORT INFORMATION
  Report Type: 
  Country: None (occurrence: None)
  Receive Date: 20090811
  Receipt Date: 20090804
  Transmission Date: 20100115
  Serious: Yes (Hospitalization)
  Sender: FDA-Public Use
  Company Number: A0781090A

PATIENT
  Age: 55 Year
  Sex: Male

DRUGS (3)
  1. AVANDIA [Suspect]
     Dosage: 4MG TWICE PER DAY
     Route: 048
     Dates: start: 20040214, end: 20070101
  2. AVANDAMET [Suspect]
     Route: 065
  3. AVANDARYL [Suspect]
     Route: 065

REACTIONS (5)
  - BLOOD CHOLESTEROL ABNORMAL [None]
  - ERECTILE DYSFUNCTION [None]
  - HYPERTENSION [None]
  - MYOCARDIAL INFARCTION [None]
  - MYOCARDIAL ISCHAEMIA [None]
